FAERS Safety Report 12321704 (Version 1)
Quarter: 2016Q2

REPORT INFORMATION
  Report Type: Spontaneous
  Country: US (occurrence: US)
  Receive Date: 20160502
  Receipt Date: 20160502
  Transmission Date: 20160815
  Serious: Yes (Other)
  Sender: FDA-Public Use
  Company Number: US-ALKERMES INC.-ALK-2016-001089

PATIENT
  Sex: Male
  Weight: 63.49 kg

DRUGS (3)
  1. VIVITROL [Suspect]
     Active Substance: NALTREXONE
     Dosage: 380 MG, QMO
     Route: 030
     Dates: start: 20160419
  2. VIVITROL [Suspect]
     Active Substance: NALTREXONE
     Indication: DRUG DEPENDENCE
     Dosage: 380 MG, QMO
     Route: 030
  3. XANAX [Concomitant]
     Active Substance: ALPRAZOLAM
     Indication: ANXIETY
     Dosage: UNK

REACTIONS (11)
  - Road traffic accident [Recovered/Resolved]
  - Back pain [Not Recovered/Not Resolved]
  - Sensory loss [Unknown]
  - Nerve compression [Unknown]
  - Activities of daily living impaired [Unknown]
  - Drug dependence [Recovered/Resolved]
  - Pain in extremity [Not Recovered/Not Resolved]
  - Paraparesis [Unknown]
  - Peroneal nerve palsy [Not Recovered/Not Resolved]
  - Device malfunction [Unknown]
  - Sciatic nerve injury [Unknown]
